FAERS Safety Report 7687399-8 (Version None)
Quarter: 2011Q3

REPORT INFORMATION
  Report Type: 
  Country: None (occurrence: None)
  Receive Date: 20110816
  Receipt Date: 20110805
  Transmission Date: 20111222
  Serious: Yes (Life-Threatening, Hospitalization)
  Sender: FDA-Public Use
  Company Number: FR-SANOFI-AVENTIS-2011SA039501

PATIENT
  Age: 70 Year
  Sex: Female

DRUGS (8)
  1. GLYBURIDE [Suspect]
     Route: 048
  2. LEVOTHYROXINE SODIUM [Concomitant]
     Indication: HYPOTHYROIDISM
     Route: 048
  3. KETOPROFEN [Suspect]
     Route: 048
     Dates: start: 20110606, end: 20110607
  4. LITHIUM CARBONATE [Interacting]
     Route: 048
  5. ISRADIPINE [Concomitant]
     Dosage: DOSE:1 UNIT(S)
     Route: 048
     Dates: end: 20110607
  6. METFORMIN HCL [Concomitant]
     Route: 048
  7. IRBESARTAN AND HYDROCHLOROTHIAZIDE [Suspect]
     Dosage: DOSE:1 UNIT(S)
     Route: 048
     Dates: end: 20110607
  8. LEVOTHYROXINE SODIUM [Concomitant]
     Route: 048

REACTIONS (7)
  - HYPOGLYCAEMIA [None]
  - TUBULOINTERSTITIAL NEPHRITIS [None]
  - ANTIPSYCHOTIC DRUG LEVEL ABOVE THERAPEUTIC [None]
  - DRUG INTERACTION [None]
  - LACTIC ACIDOSIS [None]
  - RENAL FAILURE ACUTE [None]
  - HYPERKALAEMIA [None]
